FAERS Safety Report 25799301 (Version 1)
Quarter: 2025Q3

REPORT INFORMATION
  Report Type: Spontaneous
  Country: EU (occurrence: EU)
  Receive Date: 20250913
  Receipt Date: 20250913
  Transmission Date: 20251020
  Serious: Yes (Other)
  Sender: ACCORD
  Company Number: EU-MLMSERVICE-20250827-PI626796-00218-1

PATIENT
  Age: 54 Year
  Sex: Female

DRUGS (8)
  1. METHOTREXATE [Suspect]
     Active Substance: METHOTREXATE
     Indication: Diffuse large B-cell lymphoma
     Dates: start: 2025
  2. CYTARABINE [Suspect]
     Active Substance: CYTARABINE
     Indication: B-cell lymphoma recurrent
     Dates: start: 2025
  3. THIOTEPA [Suspect]
     Active Substance: THIOTEPA
     Indication: B-cell lymphoma recurrent
     Dates: start: 2025
  4. RITUXIMAB [Suspect]
     Active Substance: RITUXIMAB
     Indication: B-cell lymphoma recurrent
     Dates: start: 2025
  5. CYTARABINE [Suspect]
     Active Substance: CYTARABINE
     Indication: Central nervous system lymphoma
     Dates: start: 2025
  6. THIOTEPA [Suspect]
     Active Substance: THIOTEPA
     Indication: Central nervous system lymphoma
     Dates: start: 2025
  7. METHOTREXATE [Suspect]
     Active Substance: METHOTREXATE
     Indication: Central nervous system lymphoma
     Dates: start: 2025
  8. RITUXIMAB [Suspect]
     Active Substance: RITUXIMAB
     Indication: Central nervous system lymphoma
     Dates: start: 2025

REACTIONS (2)
  - Cytopenia [Unknown]
  - Off label use [Unknown]

NARRATIVE: CASE EVENT DATE: 20250101
